FAERS Safety Report 24570054 (Version 1)
Quarter: 2024Q4

REPORT INFORMATION
  Report Type: Spontaneous
  Country: US (occurrence: US)
  Receive Date: 20241031
  Receipt Date: 20241031
  Transmission Date: 20250115
  Serious: No
  Sender: PFIZER
  Company Number: US-PFIZER INC-202400289274

PATIENT
  Age: 70 Year
  Sex: Male
  Weight: 100.7 kg

DRUGS (1)
  1. TIKOSYN [Suspect]
     Active Substance: DOFETILIDE
     Dosage: 250 UG, 2X/DAY
     Route: 048
     Dates: start: 20240916, end: 20240919

REACTIONS (1)
  - Cardiac disorder [Unknown]
